FAERS Safety Report 24166215 (Version 1)
Quarter: 2024Q3

REPORT INFORMATION
  Report Type: Spontaneous
  Country: US (occurrence: US)
  Receive Date: 20240802
  Receipt Date: 20240802
  Transmission Date: 20241017
  Serious: No
  Sender: ABBVIE
  Company Number: US-ABBVIE-5857303

PATIENT
  Sex: Female

DRUGS (2)
  1. SKYRIZI [Suspect]
     Active Substance: RISANKIZUMAB-RZAA
     Indication: Psoriasis
     Dosage: WEEK 0, FORM STRENGTH: 150MG/ML
     Route: 058
     Dates: start: 20240412, end: 20240412
  2. SKYRIZI [Suspect]
     Active Substance: RISANKIZUMAB-RZAA
     Dosage: WEEK 4, FORM STRENGTH: 150MG/ML
     Route: 058
     Dates: start: 20240626

REACTIONS (3)
  - Incorrect product administration duration [Unknown]
  - Respiratory tract congestion [Unknown]
  - Cough [Unknown]
